FAERS Safety Report 19395951 (Version 2)
Quarter: 2021Q2

REPORT INFORMATION
  Report Type: Report from Study
  Country: US (occurrence: US)
  Receive Date: 20210609
  Receipt Date: 20210625
  Transmission Date: 20210717
  Serious: Yes (Hospitalization, Other)
  Sender: FDA-Public Use
  Company Number: US-TAKEDA-2021TUS036175

PATIENT
  Age: 51 Year
  Sex: Male
  Weight: 84 kg

DRUGS (23)
  1. PREDNISONE. [Concomitant]
     Active Substance: PREDNISONE
  2. CENTRUM MEN [Concomitant]
     Active Substance: MINERALS\VITAMINS
  3. VITAMIN D3 [Concomitant]
     Active Substance: CHOLECALCIFEROL
  4. FERROUS GLUCONATE [Concomitant]
     Active Substance: FERROUS GLUCONATE
  5. LASIX [Concomitant]
     Active Substance: FUROSEMIDE
  6. ALBUTEROL. [Concomitant]
     Active Substance: ALBUTEROL
  7. MEDICINSK OXYGEN AGA [Concomitant]
  8. EPINEPHRINE. [Concomitant]
     Active Substance: EPINEPHRINE
  9. LMX [Concomitant]
  10. PROAIR HFA [Concomitant]
     Active Substance: ALBUTEROL SULFATE
  11. OXYGEN. [Concomitant]
     Active Substance: OXYGEN
  12. ATORVASTATIN [Concomitant]
     Active Substance: ATORVASTATIN
  13. FLONASE [Concomitant]
     Active Substance: FLUTICASONE PROPIONATE
  14. CLARITIN?D NOS [Concomitant]
     Active Substance: LORATADINE\PSEUDOEPHEDRINE SULFATE
  15. CUVITRU [Suspect]
     Active Substance: HUMAN IMMUNOGLOBULIN G
     Dosage: 55 GRAM
     Route: 058
     Dates: start: 20191019
  16. POTASSIUM [Concomitant]
     Active Substance: POTASSIUM
  17. ACETAMINOPHEN. [Concomitant]
     Active Substance: ACETAMINOPHEN
  18. DIPHENHYDRAMINE. [Concomitant]
     Active Substance: DIPHENHYDRAMINE
  19. ADVAIR UNSPEC [Concomitant]
  20. SPIRIVA [Concomitant]
     Active Substance: TIOTROPIUM BROMIDE MONOHYDRATE
  21. GAMUNEX?C [Concomitant]
     Active Substance: HUMAN IMMUNOGLOBULIN G
  22. AZITHROMYCIN ANHYDROUS. [Concomitant]
     Active Substance: AZITHROMYCIN ANHYDROUS
  23. CUVITRU [Suspect]
     Active Substance: HUMAN IMMUNOGLOBULIN G
     Indication: CONGENITAL HYPOGAMMAGLOBULINAEMIA
     Dosage: 24 GRAM, 1/WEEK
     Route: 065
     Dates: start: 20190719

REACTIONS (1)
  - Brain neoplasm [Recovered/Resolved with Sequelae]

NARRATIVE: CASE EVENT DATE: 20210510
